FAERS Safety Report 7242354-7 (Version None)
Quarter: 2011Q1

REPORT INFORMATION
  Report Type: 
  Country: None (occurrence: None)
  Receive Date: 20110125
  Receipt Date: 20091116
  Transmission Date: 20110831
  Serious: No
  Sender: FDA-Public Use
  Company Number: 2009BI037654

PATIENT
  Age: 38 Year
  Sex: Female

DRUGS (1)
  1. TYSABRI [Suspect]
     Indication: MULTIPLE SCLEROSIS
     Route: 042
     Dates: start: 20071010

REACTIONS (7)
  - VISION BLURRED [None]
  - DYSPNOEA [None]
  - CYSTITIS [None]
  - HEADACHE [None]
  - CHEST PAIN [None]
  - FATIGUE [None]
  - CONSTIPATION [None]
